FAERS Safety Report 4535479-8 (Version None)
Quarter: 2004Q4

REPORT INFORMATION
  Report Type: 
  Country: None (occurrence: None)
  Receive Date: 20041222
  Receipt Date: 20041208
  Transmission Date: 20050328
  Serious: Yes (Death)
  Sender: FDA-Public Use
  Company Number: BE-AMGEN-US104253

PATIENT
  Sex: Male

DRUGS (1)
  1. ENBREL [Suspect]
     Indication: GRAFT VERSUS HOST DISEASE
     Route: 058
     Dates: start: 20040901, end: 20040901

REACTIONS (4)
  - BRONCHOPULMONARY ASPERGILLOSIS [None]
  - CONDITION AGGRAVATED [None]
  - GRAFT VERSUS HOST DISEASE [None]
  - PNEUMONIA CYTOMEGALOVIRAL [None]
